FAERS Safety Report 5828452-0 (Version None)
Quarter: 2008Q3

REPORT INFORMATION
  Report Type: 
  Country: None (occurrence: None)
  Receive Date: 20080731
  Receipt Date: 20080718
  Transmission Date: 20090109
  Serious: Yes (Hospitalization)
  Sender: FDA-Public Use
  Company Number: FR-WATSON-2008-04430

PATIENT
  Age: 75 Year
  Sex: Male

DRUGS (3)
  1. FORTAMET EXTENDED RELEASE (WATSON LABORATORIES) [Suspect]
     Indication: DIABETES MELLITUS
     Dosage: 850 MG, BID
     Route: 065
     Dates: start: 20070401
  2. FLUDARABINE PHOSPHATE [Suspect]
     Indication: SPLENIC MARGINAL ZONE LYMPHOMA
     Dosage: 25 MG/M2, DAILY X 5 DAYS
     Route: 042
     Dates: start: 20070101, end: 20070101
  3. FLUDARABINE PHOSPHATE [Suspect]
     Dosage: 40 MG/M2, DAILY
     Route: 048
     Dates: start: 20070201

REACTIONS (2)
  - AUTOIMMUNE NEUTROPENIA [None]
  - DRUG INTERACTION [None]
